FAERS Safety Report 6530383-8 (Version None)
Quarter: 2010Q1

REPORT INFORMATION
  Report Type: 
  Country: None (occurrence: None)
  Receive Date: 20100107
  Receipt Date: 20091229
  Transmission Date: 20100710
  Serious: Yes (Other)
  Sender: FDA-Public Use
  Company Number: US-ELI_LILLY_AND_COMPANY-US200911003207

PATIENT
  Sex: Female

DRUGS (10)
  1. FORTEO [Suspect]
     Indication: OSTEOPOROSIS
     Dosage: 20 UG, DAILY (1/D)
     Dates: start: 20091005, end: 20090101
  2. CALTRATE +D [Concomitant]
     Dosage: UNK, 4/D
  3. VITAMIN D [Concomitant]
     Dosage: 1000 IU, UNK
  4. OXYCODONE HCL [Concomitant]
  5. FENTANYL /00174601/ [Concomitant]
     Route: 062
  6. METHOCARBAMOL [Concomitant]
  7. LYRICA [Concomitant]
  8. LORAZEPAM [Concomitant]
  9. QVAR 40 [Concomitant]
  10. PEPCID [Concomitant]

REACTIONS (1)
  - HYPERCALCAEMIA [None]
